FAERS Safety Report 6713677-2 (Version None)
Quarter: 2010Q2

REPORT INFORMATION
  Report Type: 
  Country: None (occurrence: None)
  Receive Date: 20100506
  Receipt Date: 20100428
  Transmission Date: 20101027
  Serious: Yes (Other)
  Sender: FDA-Public Use
  Company Number: GB-TEVA-233454ISR

PATIENT
  Age: 26 Year
  Sex: Female
  Weight: 88.9 kg

DRUGS (2)
  1. LAMOTRIGINE [Suspect]
     Indication: GRAND MAL CONVULSION
     Route: 048
     Dates: start: 20100413
  2. LAMOTRIGINE [Suspect]
     Route: 048
     Dates: start: 20100401

REACTIONS (2)
  - NECK MASS [None]
  - RASH GENERALISED [None]
